FAERS Safety Report 6305481-4 (Version None)
Quarter: 2009Q3

REPORT INFORMATION
  Report Type: 
  Country: None (occurrence: None)
  Receive Date: 20090811
  Receipt Date: 20090806
  Transmission Date: 20100115
  Serious: Yes (Other)
  Sender: FDA-Public Use
  Company Number: GB-JNJCH-2009021195

PATIENT
  Age: 56 Year
  Sex: Female

DRUGS (3)
  1. CETIRIZINE HYDROCHLORIDE [Suspect]
     Indication: DRUG USE FOR UNKNOWN INDICATION
     Dosage: TEXT:1 ^DF^ / 1 TOTAL
     Route: 048
     Dates: start: 20090601, end: 20090601
  2. VENTOLIN [Concomitant]
     Indication: ASTHMA
     Dosage: TEXT:2 ^DF^ AS NECESSARY
     Route: 055
  3. FLUOXETINE [Concomitant]
     Indication: DEPRESSION
     Dosage: TEXT:UNSPECIFIED
     Route: 065
     Dates: start: 20060101, end: 20070101

REACTIONS (1)
  - SUICIDAL IDEATION [None]
